FAERS Safety Report 20305462 (Version 1)
Quarter: 2022Q1

REPORT INFORMATION
  Report Type: Spontaneous
  Country: US (occurrence: US)
  Receive Date: 20220106
  Receipt Date: 20220106
  Transmission Date: 20220423
  Serious: No
  Sender: FDA-Public Use
  Company Number: US-AMNEAL PHARMACEUTICALS-2021-AMRX-04814

PATIENT
  Age: 51 Year
  Sex: Female
  Weight: 83.4 kg

DRUGS (9)
  1. ACTIVELLA [Suspect]
     Active Substance: ESTRADIOL\NORETHINDRONE ACETATE
     Indication: Uterine leiomyoma
     Dosage: 1 TABLETS, 1 /DAY
     Route: 048
     Dates: start: 20191009, end: 20200916
  2. ACTIVELLA [Suspect]
     Active Substance: ESTRADIOL\NORETHINDRONE ACETATE
     Dosage: 1 TABLETS, 1 /DAY
     Route: 048
     Dates: start: 20200917, end: 20210929
  3. ELAGOLIX [Suspect]
     Active Substance: ELAGOLIX
     Indication: Uterine leiomyoma
     Dosage: 1 CAPSULES, 1 /DAY
     Route: 048
     Dates: start: 20191009, end: 20200916
  4. ELAGOLIX [Suspect]
     Active Substance: ELAGOLIX
     Dosage: 1 CAPSULES, 1 /DAY (PM)
     Route: 048
     Dates: start: 20191009, end: 20200916
  5. ELAGOLIX [Suspect]
     Active Substance: ELAGOLIX
     Dosage: 1 CAPSULES, 1 /DAY
     Route: 048
     Dates: start: 20200917, end: 20210929
  6. ELAGOLIX [Suspect]
     Active Substance: ELAGOLIX
     Dosage: 1 CAPSULES, 1 /DAY (PM)
     Route: 048
     Dates: start: 20200917, end: 20210929
  7. METFORMIN [Concomitant]
     Active Substance: METFORMIN HYDROCHLORIDE
     Indication: Diabetes mellitus
     Dosage: 500 MILLIGRAM, 2X/DAY
     Route: 048
     Dates: start: 201804
  8. DOCUSATE [Concomitant]
     Active Substance: DOCUSATE
     Indication: Constipation
     Dosage: 100 MILLIGRAM AS NEEDED
     Route: 048
  9. IRON [Concomitant]
     Active Substance: IRON
     Indication: Anaemia prophylaxis
     Dosage: 1 TABLETS, 1 /DAY
     Route: 048
     Dates: start: 201904

REACTIONS (1)
  - Bone density decreased [Not Recovered/Not Resolved]

NARRATIVE: CASE EVENT DATE: 20210924
